FAERS Safety Report 5804870-1 (Version None)
Quarter: 2008Q3

REPORT INFORMATION
  Report Type: 
  Country: None (occurrence: None)
  Receive Date: 20080709
  Receipt Date: 20070521
  Transmission Date: 20090109
  Serious: Yes (Other)
  Sender: FDA-Public Use
  Company Number: US-PFIZER INC-2007011750

PATIENT
  Age: 78 Year
  Sex: Male

DRUGS (2)
  1. XALATAN [Suspect]
     Indication: GLAUCOMA
     Dosage: DAILY DOSE:2DROP
     Dates: start: 20060406, end: 20061216
  2. ACETYLSALICYLIC ACID SRT [Concomitant]

REACTIONS (5)
  - DEAFNESS [None]
  - INFLUENZA LIKE ILLNESS [None]
  - NAUSEA [None]
  - SUICIDAL IDEATION [None]
  - VERTIGO [None]
